FAERS Safety Report 22164015 (Version 2)
Quarter: 2024Q1

REPORT INFORMATION
  Report Type: Report from Study
  Country: AE (occurrence: AE)
  Receive Date: 20230402
  Receipt Date: 20240229
  Transmission Date: 20240410
  Serious: Yes (Other)
  Sender: FDA-Public Use
  Company Number: AE-002147023-NVSC2023AE044351

PATIENT
  Age: 25 Year
  Sex: Female

DRUGS (1)
  1. TASIGNA [Suspect]
     Active Substance: NILOTINIB
     Indication: Chronic myeloid leukaemia
     Dosage: 300 MG, BID
     Route: 048
     Dates: start: 20210120, end: 20230214

REACTIONS (3)
  - Pregnancy on contraceptive [Unknown]
  - Maternal exposure during pregnancy [Unknown]
  - Normal newborn [Unknown]

NARRATIVE: CASE EVENT DATE: 20230901
